FAERS Safety Report 5630343-5 (Version None)
Quarter: 2008Q1

REPORT INFORMATION
  Report Type: 
  Country: None (occurrence: None)
  Receive Date: 20080213
  Receipt Date: 20080205
  Transmission Date: 20080703
  Serious: Yes (Hospitalization, Other)
  Sender: FDA-Public Use
  Company Number: 2008SP002750

PATIENT
  Age: 57 Year
  Sex: Female
  Weight: 45.3597 kg

DRUGS (1)
  1. INTRON A [Suspect]
     Indication: CARCINOID TUMOUR
     Dosage: 6 MIU
     Dates: start: 20070101, end: 20070307

REACTIONS (7)
  - AMNESIA [None]
  - ANXIETY [None]
  - CONFUSIONAL STATE [None]
  - DEMYELINATION [None]
  - HYPONATRAEMIA [None]
  - LEGIONELLA INFECTION [None]
  - PSYCHOTIC DISORDER [None]
